FAERS Safety Report 21057161 (Version 1)
Quarter: 2022Q3

REPORT INFORMATION
  Report Type: Spontaneous
  Country: US (occurrence: US)
  Receive Date: 20220708
  Receipt Date: 20220708
  Transmission Date: 20221027
  Serious: No
  Sender: FDA-Public Use
  Company Number: US-BRISTOL-MYERS SQUIBB COMPANY-2022-062354

PATIENT
  Age: 83 Year
  Sex: Male
  Weight: 85.73 kg

DRUGS (1)
  1. ORENCIA [Suspect]
     Active Substance: ABATACEPT
     Indication: Rheumatoid arthritis
     Dosage: DOSE : 5;     FREQ : 1 EVERY OTHER WEEK THEN EVERY MONTH
     Route: 065
     Dates: start: 202204

REACTIONS (3)
  - Arthralgia [Unknown]
  - Productive cough [Unknown]
  - Off label use [Unknown]
